FAERS Safety Report 16703007 (Version 12)
Quarter: 2021Q2

REPORT INFORMATION
  Report Type: Report from Study
  Country: FR (occurrence: FR)
  Receive Date: 20190814
  Receipt Date: 20210421
  Transmission Date: 20210716
  Serious: Yes (Death, Hospitalization)
  Sender: FDA-Public Use
  Company Number: FR-EISAI MEDICAL RESEARCH-EC-2019-059695

PATIENT
  Age: 63 Year
  Sex: Male
  Weight: 72.8 kg

DRUGS (13)
  1. SELECTOL [Concomitant]
     Active Substance: CELIPROLOL
     Dates: start: 200001, end: 20190719
  2. VISMED [Concomitant]
     Active Substance: HYALURONATE SODIUM
     Dates: start: 201501
  3. LENVATINIB [Suspect]
     Active Substance: LENVATINIB
     Indication: HEPATOCELLULAR CARCINOMA
     Route: 048
     Dates: start: 20190716, end: 20190723
  4. LORMETAZEPAM [Concomitant]
     Active Substance: LORMETAZEPAM
     Dates: start: 201905, end: 20190724
  5. LEXOMIL [Concomitant]
     Active Substance: BROMAZEPAM
     Indication: PAIN
     Dates: start: 20190619, end: 20190724
  6. GELTIM LP [Concomitant]
     Active Substance: TIMOLOL MALEATE
     Dates: start: 201501
  7. MOVICOL [Concomitant]
     Active Substance: POLYETHYLENE GLYCOL 3350\POTASSIUM CHLORIDE\SODIUM BICARBONATE\SODIUM CHLORIDE
     Dates: start: 20190615
  8. PLACEBO [Suspect]
     Active Substance: UNSPECIFIED INGREDIENT
     Indication: HEPATOCELLULAR CARCINOMA
     Route: 041
     Dates: start: 20190716, end: 20190716
  9. LANSOPRAZOLE. [Concomitant]
     Active Substance: LANSOPRAZOLE
     Dates: start: 201501, end: 20190724
  10. ACETAMINOPHEN. [Suspect]
     Active Substance: ACETAMINOPHEN
     Indication: ABDOMINAL PAIN
     Dosage: TOTAL DAILY DOSE: 3 GRAM
     Route: 048
     Dates: start: 201905
  11. TRAMADOL HYDROCHLORIDE. [Suspect]
     Active Substance: TRAMADOL HYDROCHLORIDE
     Indication: ABDOMINAL PAIN
     Route: 048
     Dates: start: 20190702, end: 20190723
  12. CO?RENITEC [Concomitant]
     Active Substance: ENALAPRIL\HYDROCHLOROTHIAZIDE
     Dates: start: 20190720
  13. NORMACOL [Concomitant]
     Active Substance: HERBALS\KARAYA GUM
     Dates: start: 20190708, end: 20190708

REACTIONS (1)
  - Malignant neoplasm progression [Not Recovered/Not Resolved]

NARRATIVE: CASE EVENT DATE: 20190722
